FAERS Safety Report 4367512-0 (Version None)
Quarter: 2004Q2

REPORT INFORMATION
  Report Type: 
  Country: None (occurrence: None)
  Receive Date: 20040517
  Receipt Date: 20040427
  Transmission Date: 20050107
  Serious: Yes (Death, Life-Threatening)
  Sender: FDA-Public Use
  Company Number: 236611

PATIENT
  Age: 75 Year
  Sex: Female
  Weight: 50 kg

DRUGS (1)
  1. NOVOSEVEN [Suspect]
     Indication: INTRA-ABDOMINAL HAEMORRHAGE
     Dates: start: 20040415

REACTIONS (3)
  - DRUG INEFFECTIVE FOR UNAPPROVED INDICATION [None]
  - HAEMORRHAGE SUBCUTANEOUS [None]
  - INTRA-ABDOMINAL HAEMORRHAGE [None]
